FAERS Safety Report 9746869 (Version 1)
Quarter: 2013Q4

REPORT INFORMATION
  Report Type: Spontaneous
  Country: US (occurrence: US)
  Receive Date: 20131211
  Receipt Date: 20131211
  Transmission Date: 20140711
  Serious: Yes (Disabling, Other)
  Sender: FDA-Public Use
  Company Number: US-TEVA-449829USA

PATIENT
  Sex: Female

DRUGS (2)
  1. ALENDRONIC ACID [Suspect]
  2. FOSAMAX [Suspect]

REACTIONS (4)
  - Femur fracture [Unknown]
  - Bone disorder [Unknown]
  - Jaw disorder [Unknown]
  - Fracture [Unknown]
